FAERS Safety Report 9116282 (Version 1)
Quarter: 2013Q1

REPORT INFORMATION
  Report Type: Spontaneous
  Country: US (occurrence: US)
  Receive Date: 20130225
  Receipt Date: 20130225
  Transmission Date: 20140127
  Serious: No
  Sender: FDA-Public Use
  Company Number: US-009507513-1302USA009539

PATIENT
  Sex: Female

DRUGS (1)
  1. IMPLANON [Suspect]
     Dosage: UNK
     Route: 059
     Dates: start: 201201

REACTIONS (3)
  - Metrorrhagia [Recovered/Resolved]
  - Amenorrhoea [Not Recovered/Not Resolved]
  - Nausea [Not Recovered/Not Resolved]
